FAERS Safety Report 6181892-5 (Version None)
Quarter: 2009Q2

REPORT INFORMATION
  Report Type: 
  Country: None (occurrence: None)
  Receive Date: 20090506
  Receipt Date: 20090428
  Transmission Date: 20091009
  Serious: Yes (Other)
  Sender: FDA-Public Use
  Company Number: PH-MERCK-0808PHL00010

PATIENT
  Sex: Female

DRUGS (2)
  1. JANUVIA [Suspect]
     Indication: DIABETES MELLITUS
     Route: 048
     Dates: end: 20080101
  2. SIMVASTATIN [Concomitant]
     Indication: DIABETES MELLITUS
     Route: 048
     Dates: end: 20080101

REACTIONS (1)
  - RHABDOMYOLYSIS [None]
